FAERS Safety Report 14605612 (Version 3)
Quarter: 2018Q3

REPORT INFORMATION
  Report Type: Spontaneous
  Country: US (occurrence: US)
  Receive Date: 20180306
  Receipt Date: 20180831
  Transmission Date: 20181010
  Serious: No
  Sender: FDA-Public Use
  Company Number: US-INTERCEPT-PMOCA2018000084

PATIENT

DRUGS (1)
  1. OCALIVA [Suspect]
     Active Substance: OBETICHOLIC ACID
     Indication: PRIMARY BILIARY CHOLANGITIS
     Dosage: 5 MG, QD
     Route: 048
     Dates: start: 201708, end: 201806

REACTIONS (11)
  - Drug dose omission [Unknown]
  - Nasopharyngitis [Recovered/Resolved]
  - Liver function test abnormal [Recovering/Resolving]
  - Asthenia [Recovered/Resolved]
  - Chromaturia [Recovered/Resolved]
  - Pruritus [Recovered/Resolved]
  - Insomnia [Recovered/Resolved]
  - Fatigue [Recovered/Resolved]
  - Malaise [Unknown]
  - Weight decreased [Unknown]
  - Cough [Unknown]

NARRATIVE: CASE EVENT DATE: 201801
